FAERS Safety Report 4458541-7 (Version None)
Quarter: 2004Q3

REPORT INFORMATION
  Report Type: 
  Country: None (occurrence: None)
  Receive Date: 20040922
  Receipt Date: 20030812
  Transmission Date: 20050211
  Serious: Yes (Hospitalization)
  Sender: FDA-Public Use
  Company Number: US-SHR-03-011440

PATIENT
  Age: 37 Year
  Sex: Male
  Weight: 90.7 kg

DRUGS (5)
  1. BETASERON [Suspect]
     Indication: MULTIPLE SCLEROSIS
     Dosage: 8 MIU, EVERY 2D, SUBCUTANEOUS
     Route: 058
     Dates: start: 19990304
  2. TYLENOL [Concomitant]
  3. VALIUM [Concomitant]
  4. DITROPAN [Concomitant]
  5. BACLOFEN [Concomitant]

REACTIONS (2)
  - ANAL FISSURE [None]
  - MULTIPLE SCLEROSIS RELAPSE [None]
